FAERS Safety Report 14576837 (Version 2)
Quarter: 2018Q1

REPORT INFORMATION
  Report Type: Spontaneous
  Country: FR (occurrence: FR)
  Receive Date: 20180227
  Receipt Date: 20180227
  Transmission Date: 20180509
  Serious: Yes (Hospitalization, Disabling, Other)
  Sender: FDA-Public Use
  Company Number: PHHY2012FR143918

PATIENT
  Age: 37 Year
  Sex: Female

DRUGS (3)
  1. NUROFEN [Suspect]
     Active Substance: IBUPROFEN
     Indication: MIGRAINE
     Route: 065
  2. CICLOSPORIN [Suspect]
     Active Substance: CYCLOSPORINE
     Indication: TOXIC EPIDERMAL NECROLYSIS
     Dosage: 3 MG/KG, QD
     Route: 065
     Dates: start: 2007
  3. ADVIL [Suspect]
     Active Substance: IBUPROFEN
     Indication: MIGRAINE
     Route: 065

REACTIONS (23)
  - Neovascularisation [Unknown]
  - Keratitis [Unknown]
  - Ocular vascular disorder [Unknown]
  - Conjunctival hyperaemia [Unknown]
  - Toxic epidermal necrolysis [Recovered/Resolved with Sequelae]
  - Fatigue [Not Recovered/Not Resolved]
  - Aphonia [Unknown]
  - Systemic lupus erythematosus [Unknown]
  - Corneal neovascularisation [Unknown]
  - Deafness [Unknown]
  - Depressive symptom [Unknown]
  - Post-traumatic stress disorder [Unknown]
  - Neurotoxicity [Recovered/Resolved]
  - Blindness [Unknown]
  - Anxiety [Not Recovered/Not Resolved]
  - Mobility decreased [Unknown]
  - Pulmonary oedema [Unknown]
  - Visual acuity reduced [Not Recovered/Not Resolved]
  - Delirium [Unknown]
  - Pneumonia staphylococcal [Recovered/Resolved]
  - Scar [Unknown]
  - Pneumonitis [Unknown]
  - Drug ineffective [Unknown]

NARRATIVE: CASE EVENT DATE: 2007
